FAERS Safety Report 7994246-3 (Version None)
Quarter: 2011Q4

REPORT INFORMATION
  Report Type: 
  Country: None (occurrence: None)
  Receive Date: 20111123
  Receipt Date: 20110906
  Transmission Date: 20120403
  Serious: No
  Sender: FDA-Public Use
  Company Number: 337084

PATIENT
  Age: 65 Year
  Sex: Female

DRUGS (1)
  1. VICTOZA [Suspect]
     Indication: TYPE 2 DIABETES MELLITUS
     Dosage: SUBCUTANEOUS
     Route: 059
     Dates: start: 20110801

REACTIONS (7)
  - NAUSEA [None]
  - INCORRECT DOSE ADMINISTERED [None]
  - DYSPEPSIA [None]
  - WEIGHT DECREASED [None]
  - EYE HAEMORRHAGE [None]
  - VOMITING [None]
  - THROAT IRRITATION [None]
